FAERS Safety Report 4892001-4 (Version None)
Quarter: 2006Q1

REPORT INFORMATION
  Report Type: 
  Country: None (occurrence: None)
  Receive Date: 20060124
  Receipt Date: 20060124
  Transmission Date: 20060701
  Serious: Yes (Other)
  Sender: FDA-Public Use
  Company Number: None

PATIENT
  Age: 38 Year
  Sex: Female
  Weight: 49.8957 kg

DRUGS (2)
  1. FLUOXETINE [Suspect]
     Indication: OBSESSIVE-COMPULSIVE DISORDER
     Dosage: 20 MG TWO QD PO
     Route: 048
     Dates: start: 20051101
  2. FLUOXETINE [Suspect]
     Indication: TRICHOTILLOMANIA
     Dosage: 20 MG TWO QD PO
     Route: 048
     Dates: start: 20051101

REACTIONS (1)
  - DRUG INEFFECTIVE [None]
